FAERS Safety Report 12173891 (Version 1)
Quarter: 2016Q1

REPORT INFORMATION
  Report Type: Spontaneous
  Country: US (occurrence: None)
  Receive Date: 20160311
  Receipt Date: 20160311
  Transmission Date: 20160526
  Serious: Yes (Other)
  Sender: FDA-Public Use
  Company Number: None

PATIENT
  Age: 10 Year
  Sex: Female
  Weight: 44.45 kg

DRUGS (7)
  1. BLOOD GLUCOSE MONITORING SYSTEM [Concomitant]
  2. HUMALOG [Concomitant]
     Active Substance: INSULIN LISPRO
  3. KETOSTIX [Concomitant]
  4. SYRINGES [Concomitant]
     Active Substance: DEVICE
  5. GLUCAGON. [Concomitant]
     Active Substance: GLUCAGON
  6. INSULIN [Suspect]
     Active Substance: INSULIN NOS
  7. LANTUS [Concomitant]
     Active Substance: INSULIN GLARGINE

REACTIONS (3)
  - Blood glucose increased [None]
  - Device issue [None]
  - Incorrect dose administered [None]

NARRATIVE: CASE EVENT DATE: 20160309
